FAERS Safety Report 4285583-7 (Version None)
Quarter: 2004Q1

REPORT INFORMATION
  Report Type: 
  Country: None (occurrence: None)
  Receive Date: 20040203
  Receipt Date: 20040119
  Transmission Date: 20041129
  Serious: Yes (Other)
  Sender: FDA-Public Use
  Company Number: 235009

PATIENT
  Age: 17 Year
  Sex: Male

DRUGS (1)
  1. NORDITROPIN [Suspect]
     Indication: GROWTH HORMONE DEFICIENCY

REACTIONS (3)
  - ASEPTIC NECROSIS BONE [None]
  - HIP DEFORMITY [None]
  - SLIPPED FEMORAL EPIPHYSIS [None]
